FAERS Safety Report 15208471 (Version 1)
Quarter: 2018Q3

REPORT INFORMATION
  Report Type: Spontaneous
  Country: US (occurrence: US)
  Receive Date: 20180727
  Receipt Date: 20180727
  Transmission Date: 20181010
  Serious: Yes (Death, Life-Threatening, Other)
  Sender: FDA-Public Use
  Company Number: US-GILEAD-2018-0344814

PATIENT
  Age: 69 Year
  Sex: Female
  Weight: 54.7 kg

DRUGS (1)
  1. YESCARTA [Suspect]
     Active Substance: AXICABTAGENE CILOLEUCEL
     Indication: DIFFUSE LARGE B-CELL LYMPHOMA
     Dosage: UNK, SINGLE
     Route: 042
     Dates: start: 20171227, end: 20171227

REACTIONS (21)
  - Encephalopathy [Unknown]
  - Disorientation [Unknown]
  - Somnolence [Unknown]
  - Hypoxia [Unknown]
  - Metabolic acidosis [None]
  - Lymphoma [Fatal]
  - Dysphagia [Unknown]
  - Oliguria [Unknown]
  - Hydronephrosis [None]
  - Cytokine release syndrome [Unknown]
  - Tremor [Unknown]
  - Aphasia [Unknown]
  - Neurotoxicity [None]
  - Memory impairment [Unknown]
  - Pleural effusion [None]
  - Confusional state [Unknown]
  - Hypotension [Unknown]
  - Multiple organ dysfunction syndrome [None]
  - Non-Hodgkin^s lymphoma [None]
  - Tachycardia [Unknown]
  - Renal replacement therapy [None]

NARRATIVE: CASE EVENT DATE: 20171226
